FAERS Safety Report 6364921-5 (Version None)
Quarter: 2009Q3

REPORT INFORMATION
  Report Type: 
  Country: None (occurrence: None)
  Receive Date: 20090919
  Receipt Date: 20090730
  Transmission Date: 20100115
  Serious: No
  Sender: FDA-Public Use
  Company Number: US-ABBOTT-09P-163-0589067-00

PATIENT
  Sex: Male
  Weight: 81.72 kg

DRUGS (6)
  1. HUMIRA [Suspect]
     Indication: CROHN'S DISEASE
     Dates: start: 20090301
  2. MERCAPTOPURINE [Concomitant]
     Indication: CROHN'S DISEASE
  3. PENTASA [Concomitant]
     Indication: CROHN'S DISEASE
  4. ELAVIL [Concomitant]
     Indication: CROHN'S DISEASE
  5. CENTRUM A-ZINC [Concomitant]
     Indication: ROUTINE HEALTH MAINTENANCE
  6. FISH OIL [Concomitant]
     Indication: CROHN'S DISEASE

REACTIONS (1)
  - DRUG DOSE OMISSION [None]
